FAERS Safety Report 19631173 (Version 1)
Quarter: 2021Q3

REPORT INFORMATION
  Report Type: Spontaneous
  Country: US (occurrence: US)
  Receive Date: 20210728
  Receipt Date: 20210728
  Transmission Date: 20211014
  Serious: Yes (Other)
  Sender: FDA-Public Use
  Company Number: US-PFIZER INC-2019475523

PATIENT
  Age: 107 Year
  Sex: Male
  Weight: 79.38 kg

DRUGS (2)
  1. PHOSPHOLINE IODIDE [Suspect]
     Active Substance: ECHOTHIOPHATE IODIDE
     Indication: OCULAR DISCOMFORT
     Dosage: 1 DROP EACH TIME
     Route: 047
     Dates: start: 2019
  2. PHOSPHOLINE IODIDE [Suspect]
     Active Substance: ECHOTHIOPHATE IODIDE
     Indication: GLAUCOMA
     Dosage: 0.125 %, 2X/DAY
     Route: 047

REACTIONS (2)
  - Blindness [Unknown]
  - Hypoacusis [Unknown]
